FAERS Safety Report 21368102 (Version 3)
Quarter: 2022Q4

REPORT INFORMATION
  Report Type: Spontaneous
  Country: US (occurrence: US)
  Receive Date: 20220923
  Receipt Date: 20221031
  Transmission Date: 20230113
  Serious: No
  Sender: FDA-Public Use
  Company Number: US-SANOFI-01284528

PATIENT
  Age: 72 Year
  Sex: Male

DRUGS (1)
  1. ENOXAPARIN SODIUM [Suspect]
     Active Substance: ENOXAPARIN SODIUM
     Dosage: UNK, BID
     Dates: start: 20220729

REACTIONS (2)
  - Injection site vesicles [Unknown]
  - Device issue [Unknown]

NARRATIVE: CASE EVENT DATE: 20220901
